FAERS Safety Report 9486363 (Version 4)
Quarter: 2013Q4

REPORT INFORMATION
  Report Type: Spontaneous
  Country: US (occurrence: US)
  Receive Date: 20130829
  Receipt Date: 20131223
  Transmission Date: 20140711
  Serious: Yes (Other)
  Sender: FDA-Public Use
  Company Number: US-ASTELLAS-2013US008976

PATIENT
  Age: 78 Year
  Sex: Female

DRUGS (1)
  1. VESICARE [Suspect]
     Indication: URINARY INCONTINENCE
     Dosage: UID/QD
     Route: 048
     Dates: start: 201209, end: 201302

REACTIONS (5)
  - Fall [Not Recovered/Not Resolved]
  - Syncope [Recovering/Resolving]
  - Hypotension [Recovered/Resolved]
  - Limb crushing injury [Unknown]
  - Dizziness [Recovered/Resolved]
